FAERS Safety Report 5711351-2 (Version None)
Quarter: 2008Q2

REPORT INFORMATION
  Report Type: 
  Country: None (occurrence: None)
  Receive Date: 20080421
  Receipt Date: 20080416
  Transmission Date: 20081010
  Serious: Yes (Life-Threatening)
  Sender: FDA-Public Use
  Company Number: B0508382A

PATIENT
  Age: 67 Year
  Sex: Female

DRUGS (21)
  1. ARIXTRA [Suspect]
     Indication: THROMBOSIS PROPHYLAXIS
     Dosage: 2.5MG PER DAY
     Route: 058
     Dates: start: 20071006, end: 20071006
  2. ASPIRIN [Concomitant]
     Dosage: 7.5MG PER DAY
     Route: 048
  3. RANITIDINE [Concomitant]
     Dosage: 150MG PER DAY
     Route: 048
  4. ENOXAPARIN SODIUM [Concomitant]
     Dosage: 40MG PER DAY
     Route: 058
  5. MOXIFLOXACIN HCL [Concomitant]
     Dosage: 400MG PER DAY
     Route: 048
  6. ENOXAPARIN SODIUM [Concomitant]
     Dates: start: 20071019, end: 20071022
  7. DICLOFENAC [Concomitant]
     Dates: start: 20071005
  8. PARACETAMOL [Concomitant]
     Route: 065
     Dates: start: 20071016, end: 20071021
  9. LIPITOR [Concomitant]
     Dates: start: 20070926
  10. SERETIDE [Concomitant]
     Dates: start: 20070926
  11. BACTROBAN [Concomitant]
     Dates: start: 20071001
  12. OMEPRAZOLE [Concomitant]
     Dates: start: 20071014, end: 20071015
  13. COAMILOFRUSE [Concomitant]
     Dates: start: 20071013, end: 20071019
  14. BISOPROLOL FUMARATE [Concomitant]
     Dates: start: 20071012, end: 20071019
  15. DOXAZOSIN MESYLATE [Concomitant]
     Dates: start: 20070927, end: 20071020
  16. LACTULOSE [Concomitant]
     Dates: start: 20071010, end: 20071021
  17. COMBIVENT [Concomitant]
     Dates: start: 20070926, end: 20071023
  18. ASPIRIN [Concomitant]
     Dates: start: 20071008, end: 20071021
  19. VANCOMYCIN [Concomitant]
     Dates: start: 20071012, end: 20071018
  20. AZTREONAM [Concomitant]
     Dates: start: 20071011, end: 20071018
  21. MOXIFLOXACIN HCL [Concomitant]
     Dates: start: 20071011, end: 20071017

REACTIONS (2)
  - RASH [None]
  - TOXIC EPIDERMAL NECROLYSIS [None]
